FAERS Safety Report 25899104 (Version 1)
Quarter: 2025Q4

REPORT INFORMATION
  Report Type: Report from Study
  Country: PE (occurrence: PE)
  Receive Date: 20251009
  Receipt Date: 20251009
  Transmission Date: 20260118
  Serious: Yes (Other)
  Sender: BIOVITRUM
  Company Number: PE-AstraZeneca-CH-00964365A

PATIENT
  Age: 3 Month
  Sex: Female

DRUGS (1)
  1. PALIVIZUMAB [Suspect]
     Active Substance: PALIVIZUMAB
     Indication: Respiratory syncytial virus immunisation
     Dosage: 15 MILLIGRAM/KILOGRAM, QMONTH
     Route: 030
     Dates: start: 20250709

REACTIONS (2)
  - Bronchiolitis [Not Recovered/Not Resolved]
  - Dysphonia [Not Recovered/Not Resolved]

NARRATIVE: CASE EVENT DATE: 20250922
